FAERS Safety Report 7622754-3 (Version None)
Quarter: 2011Q3

REPORT INFORMATION
  Report Type: 
  Country: None (occurrence: None)
  Receive Date: 20110719
  Receipt Date: 20110719
  Transmission Date: 20111222
  Serious: No
  Sender: FDA-Public Use
  Company Number: None

PATIENT
  Age: 72 Year
  Sex: Female
  Weight: 64.4108 kg

DRUGS (3)
  1. LISINOPRIL [Suspect]
     Indication: BLOOD PRESSURE
     Dosage: 10MG + 40MG ONCE DAILY
     Dates: start: 20110328
  2. LISINOPRIL [Suspect]
  3. PROPRANOLOL (PLIVA) [Suspect]
     Dosage: 10 MG 4 DAILY
     Dates: start: 20110228

REACTIONS (5)
  - HYPERSENSITIVITY [None]
  - DYSPNOEA [None]
  - MUSCULAR WEAKNESS [None]
  - ASTHENIA [None]
  - TINNITUS [None]
